FAERS Safety Report 17881446 (Version 1)
Quarter: 2020Q2

REPORT INFORMATION
  Report Type: Spontaneous
  Country: US (occurrence: US)
  Receive Date: 20200610
  Receipt Date: 20200610
  Transmission Date: 20200714
  Serious: No
  Sender: FDA-Public Use
  Company Number: US-COLLEGIUM PHARMACEUTICAL, INC.-2019CGM00249

PATIENT
  Age: 61 Year
  Sex: Female

DRUGS (13)
  1. XTAMPZA ER [Suspect]
     Active Substance: OXYCODONE
     Indication: PAIN
     Dosage: 18 MG, 2X/DAY
     Route: 048
     Dates: start: 20190822
  2. GABAPENTIN. [Concomitant]
     Active Substance: GABAPENTIN
     Dosage: UNK MG
  3. SAVELLA [Concomitant]
     Active Substance: MILNACIPRAN HYDROCHLORIDE
  4. LOVASTATIN. [Concomitant]
     Active Substance: LOVASTATIN
     Dosage: UNK
  5. FLECAINIDE [Concomitant]
     Active Substance: FLECAINIDE
  6. LANTUS [Concomitant]
     Active Substance: INSULIN GLARGINE
  7. SOTALOL. [Concomitant]
     Active Substance: SOTALOL
  8. ESCITALOPRAM [Concomitant]
     Active Substance: ESCITALOPRAM OXALATE
  9. XARELTO [Concomitant]
     Active Substance: RIVAROXABAN
  10. JARDIANCE [Concomitant]
     Active Substance: EMPAGLIFLOZIN
  11. TRAZODONE [Concomitant]
     Active Substance: TRAZODONE HYDROCHLORIDE
  12. NOVOLIN INSULIN [Concomitant]
  13. BACLOFEN. [Concomitant]
     Active Substance: BACLOFEN

REACTIONS (1)
  - Therapeutic product effect decreased [Not Recovered/Not Resolved]

NARRATIVE: CASE EVENT DATE: 201908
